FAERS Safety Report 5950070-4 (Version None)
Quarter: 2008Q4

REPORT INFORMATION
  Report Type: 
  Country: None (occurrence: None)
  Receive Date: 20081112
  Receipt Date: 20081104
  Transmission Date: 20090506
  Serious: Yes (Other)
  Sender: FDA-Public Use
  Company Number: US-ROCHE-595257

PATIENT
  Age: 59 Year
  Sex: Female

DRUGS (4)
  1. BONIVA [Suspect]
     Indication: OSTEOPOROSIS
     Dosage: FORM: PREFILLED SYRINGE TREATMENT POSTPONED
     Route: 042
     Dates: start: 20070531, end: 20080624
  2. PREMARIN [Concomitant]
  3. LIDOCAINE [Concomitant]
  4. ZELNORM [Concomitant]

REACTIONS (2)
  - BRONCHOSPASM [None]
  - RESPIRATORY TRACT INFECTION [None]
